FAERS Safety Report 5776401-6 (Version None)
Quarter: 2008Q2

REPORT INFORMATION
  Report Type: 
  Country: None (occurrence: None)
  Receive Date: 20080618
  Receipt Date: 20080423
  Transmission Date: 20081010
  Serious: No
  Sender: FDA-Public Use
  Company Number: US-BAYER-200821669NA

PATIENT
  Age: 21 Year
  Sex: Female
  Weight: 68 kg

DRUGS (6)
  1. YAZ [Suspect]
     Indication: CONTRACEPTION
     Route: 048
     Dates: start: 20080406
  2. VITAMINS - ONE A DAY FOR WOMEN [Concomitant]
  3. GLUCOSAMATE [Concomitant]
     Indication: ARTHROPATHY
  4. FISH OIL [Concomitant]
  5. OMEGA 3 [Concomitant]
  6. CALCIUM [Concomitant]

REACTIONS (1)
  - METRORRHAGIA [None]
